FAERS Safety Report 22170141 (Version 1)
Quarter: 2023Q2

REPORT INFORMATION
  Report Type: Spontaneous
  Country: US (occurrence: US)
  Receive Date: 20230404
  Receipt Date: 20230404
  Transmission Date: 20230721
  Serious: Yes (Hospitalization, Other)
  Sender: FDA-Public Use
  Company Number: US-BRISTOL-MYERS SQUIBB COMPANY-2023-044170

PATIENT
  Age: 79 Year
  Sex: Female
  Weight: 70.76 kg

DRUGS (1)
  1. REVLIMID [Suspect]
     Active Substance: LENALIDOMIDE
     Indication: Plasma cell myeloma
     Dosage: 10 MG DAILY FOR 21 DAYS OF A 35 DAY CYCLE
     Route: 048
     Dates: end: 20230327

REACTIONS (3)
  - Urticaria [Recovering/Resolving]
  - Pulmonary thrombosis [Recovering/Resolving]
  - Off label use [Unknown]
